FAERS Safety Report 5826220-7 (Version None)
Quarter: 2008Q3

REPORT INFORMATION
  Report Type: 
  Country: None (occurrence: None)
  Receive Date: 20080729
  Receipt Date: 20080722
  Transmission Date: 20090109
  Serious: Yes (Hospitalization)
  Sender: FDA-Public Use
  Company Number: JP-PFIZER INC-2008061807

PATIENT
  Age: 77 Year
  Sex: Female

DRUGS (16)
  1. AZULFIDINE EN-TABS [Suspect]
     Indication: RHEUMATOID ARTHRITIS
     Dosage: DAILY DOSE:1500MG
     Route: 048
     Dates: start: 20080610, end: 20080718
  2. PREDONINE [Concomitant]
  3. AMLODIN [Concomitant]
     Route: 048
  4. ALLOPURINOL [Concomitant]
     Route: 048
  5. PARIET [Concomitant]
  6. ATARAX [Concomitant]
  7. LOXONIN [Concomitant]
  8. CYANOCOBALAMIN [Concomitant]
     Route: 048
  9. MYSLEE [Concomitant]
     Route: 048
  10. EURODIN [Concomitant]
     Route: 048
  11. FOSAMAX [Concomitant]
     Route: 048
  12. MAGNESIUM OXIDE [Concomitant]
     Route: 048
  13. GASMOTIN [Concomitant]
     Route: 048
  14. PURSENNID [Concomitant]
     Route: 048
  15. DOVONEX [Concomitant]
     Route: 062
  16. LIDOMEX [Concomitant]
     Route: 062

REACTIONS (2)
  - LEUKOPENIA [None]
  - NEUTROPENIA [None]
